FAERS Safety Report 22133046 (Version 1)
Quarter: 2023Q1

REPORT INFORMATION
  Report Type: Spontaneous
  Country: ES (occurrence: ES)
  Receive Date: 20230324
  Receipt Date: 20230324
  Transmission Date: 20230417
  Serious: Yes (Hospitalization)
  Sender: FDA-Public Use
  Company Number: None

PATIENT
  Age: 91 Year
  Sex: Female

DRUGS (3)
  1. FUROSEMIDE [Interacting]
     Active Substance: FUROSEMIDE
     Indication: Chronic kidney disease
     Dosage: 160 MG DAILY
     Dates: start: 20151122, end: 20230222
  2. SPIRONOLACTONE [Interacting]
     Active Substance: SPIRONOLACTONE
     Indication: Chronic kidney disease
     Dosage: DAILY
     Dates: start: 20211018, end: 20230222
  3. CHLORTHALIDONE [Interacting]
     Active Substance: CHLORTHALIDONE
     Indication: Chronic kidney disease
     Dosage: 50MG DAILY
     Dates: start: 20230131, end: 20230217

REACTIONS (3)
  - Condition aggravated [Recovering/Resolving]
  - Acute kidney injury [Recovering/Resolving]
  - Drug interaction [Unknown]

NARRATIVE: CASE EVENT DATE: 20230211
